FAERS Safety Report 6698097-1 (Version None)
Quarter: 2010Q2

REPORT INFORMATION
  Report Type: 
  Country: None (occurrence: None)
  Receive Date: 20100427
  Receipt Date: 20100322
  Transmission Date: 20101027
  Serious: No
  Sender: FDA-Public Use
  Company Number: US-KINGPHARMUSA00001-K201000334

PATIENT
  Sex: Female
  Weight: 19.048 kg

DRUGS (1)
  1. BICILLIN C-R 900/300 [Suspect]
     Indication: STREPTOCOCCAL INFECTION
     Dosage: 1.2 MILLION UNITS, SINGLE
     Route: 030
     Dates: start: 20100322, end: 20100322

REACTIONS (2)
  - EXPIRED DRUG ADMINISTERED [None]
  - NO ADVERSE EVENT [None]
